FAERS Safety Report 10524081 (Version 1)
Quarter: 2014Q4

REPORT INFORMATION
  Report Type: Spontaneous
  Country: IT (occurrence: IT)
  Receive Date: 20141017
  Receipt Date: 20141017
  Transmission Date: 20150528
  Serious: Yes (Hospitalization)
  Sender: FDA-Public Use
  Company Number: IT-AUROBINDO-AUR-APL-2014-10879

PATIENT
  Age: 74 Year
  Sex: Male

DRUGS (4)
  1. AMOXICILLIN 1G (AMOXICILLIN) UNKNOWN, 1G [Suspect]
     Active Substance: AMOXICILLIN
     Indication: PRODUCT USED FOR UNKNOWN INDICATION
     Dosage: 1000 MG, TOTAL
     Route: 048
     Dates: start: 20141007, end: 20141007
  2. ASCRIPTIN [Concomitant]
     Active Substance: ASPIRIN
     Indication: PRODUCT USED FOR UNKNOWN INDICATION
     Dosage: 150 MG, UNK
     Route: 048
  3. BISOPROLOL HEMIFUMARATE [Concomitant]
     Active Substance: BISOPROLOL FUMARATE
     Indication: PRODUCT USED FOR UNKNOWN INDICATION
     Dosage: UNK
     Route: 048
  4. TRIATEC                            /00116401/ [Concomitant]
     Active Substance: HYDROCHLOROTHIAZIDE
     Indication: PRODUCT USED FOR UNKNOWN INDICATION
     Dosage: 5 MG, UNK
     Route: 048

REACTIONS (2)
  - Hyperaemia [Recovering/Resolving]
  - Tongue oedema [Recovering/Resolving]

NARRATIVE: CASE EVENT DATE: 20141007
